FAERS Safety Report 8450238-1 (Version None)
Quarter: 2012Q2

REPORT INFORMATION
  Report Type: 
  Country: None (occurrence: None)
  Receive Date: 20120614
  Receipt Date: 20120614
  Transmission Date: 20120825
  Serious: Yes (Other)
  Sender: FDA-Public Use
  Company Number: None

PATIENT
  Sex: Female
  Weight: 68.0396 kg

DRUGS (1)
  1. LISINOPRIL AND HYDROCHLOROTHIAZIDE [Suspect]
     Indication: BLOOD PRESSURE ABNORMAL
     Dosage: 1 TABLET, EVERY MORNING, PO
     Route: 048
     Dates: start: 20110928, end: 20120609

REACTIONS (3)
  - COUGH [None]
  - THROAT IRRITATION [None]
  - RESPIRATORY DISORDER [None]
